FAERS Safety Report 6584539-9 (Version None)
Quarter: 2010Q1

REPORT INFORMATION
  Report Type: 
  Country: None (occurrence: None)
  Receive Date: 20100217
  Receipt Date: 20100203
  Transmission Date: 20100710
  Serious: Yes (Death)
  Sender: FDA-Public Use
  Company Number: US-RANBAXY-2010US-30856

PATIENT

DRUGS (7)
  1. SILDENAFIL CITRATE [Suspect]
     Indication: CARDIOVASCULAR DISORDER
     Dosage: 25 MG, QD
     Route: 048
  2. SILDENAFIL CITRATE [Suspect]
     Indication: ERECTILE DYSFUNCTION
  3. VASTAREL [Suspect]
     Indication: DRUG USE FOR UNKNOWN INDICATION
     Route: 065
  4. ISOPTIN [Suspect]
     Indication: CARDIOVASCULAR DISORDER
     Dosage: UNK, UNK
     Route: 065
  5. YOHIMBINE [Concomitant]
     Indication: DRUG USE FOR UNKNOWN INDICATION
     Route: 065
  6. LEXOMIL [Concomitant]
     Indication: DRUG USE FOR UNKNOWN INDICATION
     Route: 065
  7. TRINITRINE [Concomitant]
     Indication: DRUG USE FOR UNKNOWN INDICATION
     Route: 065

REACTIONS (4)
  - AORTIC ARTERIOSCLEROSIS [None]
  - ARTERIOSCLEROSIS CORONARY ARTERY [None]
  - CARDIOMEGALY [None]
  - DRUG INTERACTION [None]
